FAERS Safety Report 13096464 (Version 1)
Quarter: 2017Q1

REPORT INFORMATION
  Report Type: Spontaneous
  Country: US (occurrence: US)
  Receive Date: 20170106
  Receipt Date: 20170106
  Transmission Date: 20170428
  Serious: No
  Sender: FDA-Public Use
  Company Number: None

PATIENT
  Age: 84 Year
  Sex: Female

DRUGS (1)
  1. CAPECITABINE 500MG ACCORD [Suspect]
     Active Substance: CAPECITABINE
     Indication: MALAISE
     Dosage: 1000MG TWICE A DAY 14 DAYS ON, 7 DAYS OFF THEN REPEAT ORAL
     Route: 048
     Dates: start: 20160803

REACTIONS (1)
  - Tumour haemorrhage [None]

NARRATIVE: CASE EVENT DATE: 20161215
